FAERS Safety Report 13032775 (Version 3)
Quarter: 2017Q1

REPORT INFORMATION
  Report Type: Spontaneous
  Country: US (occurrence: US)
  Receive Date: 20161215
  Receipt Date: 20170123
  Transmission Date: 20170428
  Serious: Yes (Death, Hospitalization)
  Sender: FDA-Public Use
  Company Number: US-ACTELION-A-NJ2016-146606

PATIENT
  Age: 46 Year
  Sex: Female

DRUGS (2)
  1. TRACLEER [Suspect]
     Active Substance: BOSENTAN
     Indication: PULMONARY ARTERIAL HYPERTENSION
     Dosage: 125 MG, BID
     Route: 048
     Dates: start: 200604, end: 20161126
  2. OXYGEN. [Concomitant]
     Active Substance: OXYGEN

REACTIONS (20)
  - Multiple organ dysfunction syndrome [Unknown]
  - Anuria [Unknown]
  - Diarrhoea [Unknown]
  - Oedema [Unknown]
  - Loss of consciousness [Fatal]
  - Dyspnoea exertional [Fatal]
  - Cardiac failure congestive [Unknown]
  - Endotracheal intubation complication [Unknown]
  - Acute kidney injury [Unknown]
  - Pneumonia aspiration [Unknown]
  - Acute respiratory failure [Fatal]
  - Septic shock [Unknown]
  - Pulmonary arterial hypertension [Fatal]
  - Oxygen saturation decreased [Fatal]
  - Chills [Unknown]
  - Cardiogenic shock [Unknown]
  - Hypotension [Unknown]
  - Incontinence [Unknown]
  - Cough [Unknown]
  - Cyanosis [Fatal]
